FAERS Safety Report 21784323 (Version 1)
Quarter: 2022Q4

REPORT INFORMATION
  Report Type: Spontaneous
  Country: FR (occurrence: FR)
  Receive Date: 20221227
  Receipt Date: 20221227
  Transmission Date: 20230112
  Serious: Yes (Other)
  Sender: FDA-Public Use
  Company Number: FR-SANOFI-01402707

PATIENT
  Age: 73 Year
  Sex: Male

DRUGS (2)
  1. CLOBAZAM [Suspect]
     Active Substance: CLOBAZAM
     Indication: Product used for unknown indication
     Dosage: 1 DF, TID
     Route: 065
     Dates: end: 202206
  2. TIAPRIDE HYDROCHLORIDE [Concomitant]
     Active Substance: TIAPRIDE HYDROCHLORIDE
     Indication: Product used for unknown indication
     Route: 065

REACTIONS (6)
  - Dementia Alzheimer^s type [Recovered/Resolved]
  - Parkinson^s disease [Recovered/Resolved]
  - Foot deformity [Unknown]
  - Knee deformity [Unknown]
  - Diplopia [Recovered/Resolved]
  - Product use issue [Unknown]
